FAERS Safety Report 13546677 (Version 1)
Quarter: 2017Q2

REPORT INFORMATION
  Report Type: Spontaneous
  Country: US (occurrence: US)
  Receive Date: 20170515
  Receipt Date: 20170515
  Transmission Date: 20170830
  Serious: No
  Sender: FDA-Public Use
  Company Number: US-VIFOR (INTERNATIONAL) INC.-VIT-2017-01637

PATIENT
  Sex: Male

DRUGS (7)
  1. PEPCID [Concomitant]
     Active Substance: FAMOTIDINE
  2. CALCITRIOL. [Concomitant]
     Active Substance: CALCITRIOL
  3. ALLOPURINOL. [Concomitant]
     Active Substance: ALLOPURINOL
  4. LYRICA [Concomitant]
     Active Substance: PREGABALIN
  5. LISINOPRIL. [Concomitant]
     Active Substance: LISINOPRIL
  6. VELTASSA [Suspect]
     Active Substance: PATIROMER
     Indication: HYPERKALAEMIA
     Route: 048
     Dates: start: 20160927
  7. LANTUS [Concomitant]
     Active Substance: INSULIN GLARGINE

REACTIONS (1)
  - Malaise [Unknown]
